FAERS Safety Report 8284218-6 (Version None)
Quarter: 2012Q2

REPORT INFORMATION
  Report Type: 
  Country: None (occurrence: None)
  Receive Date: 20120413
  Receipt Date: 20120124
  Transmission Date: 20120825
  Serious: No
  Sender: FDA-Public Use
  Company Number: US-ASTRAZENECA-2012SE04816

PATIENT
  Sex: Male

DRUGS (3)
  1. WARFARIN SODIUM [Concomitant]
  2. NEXIUM [Suspect]
     Route: 048
  3. DIGOXIN [Concomitant]

REACTIONS (9)
  - FEELING ABNORMAL [None]
  - GASTRIC DISORDER [None]
  - DRY MOUTH [None]
  - OFF LABEL USE [None]
  - FATIGUE [None]
  - MALAISE [None]
  - HYPERHIDROSIS [None]
  - ABDOMINAL PAIN UPPER [None]
  - FEELING JITTERY [None]
